FAERS Safety Report 5981474-1 (Version None)
Quarter: 2008Q4

REPORT INFORMATION
  Report Type: 
  Country: None (occurrence: None)
  Receive Date: 20081205
  Receipt Date: 20081202
  Transmission Date: 20090506
  Serious: Yes (Other)
  Sender: FDA-Public Use
  Company Number: US-ELI_LILLY_AND_COMPANY-US200812000847

PATIENT
  Age: 47 Year
  Sex: Female

DRUGS (1)
  1. HUMALOG [Suspect]
     Dates: start: 20030101

REACTIONS (3)
  - BLINDNESS [None]
  - HYPERGLYCAEMIA [None]
  - RETINOPATHY [None]
